FAERS Safety Report 7885204-8 (Version None)
Quarter: 2011Q4

REPORT INFORMATION
  Report Type: 
  Country: None (occurrence: None)
  Receive Date: 20111102
  Receipt Date: 20111026
  Transmission Date: 20120403
  Serious: Yes (Hospitalization, Disabling, Other)
  Sender: FDA-Public Use
  Company Number: US-SANOFI-AVENTIS-2011SA000917

PATIENT
  Age: 83 Year
  Sex: Female

DRUGS (6)
  1. PLAVIX [Suspect]
     Route: 048
     Dates: start: 20101013, end: 20111019
  2. ALL OTHER THERAPEUTIC PRODUCTS [Concomitant]
  3. PLAVIX [Suspect]
     Route: 048
     Dates: start: 20111025
  4. ZOCOR [Concomitant]
  5. ASPIRIN [Concomitant]
  6. METOPROLOL TARTRATE [Concomitant]

REACTIONS (12)
  - BACK PAIN [None]
  - POST PROCEDURAL COMPLICATION [None]
  - CORONARY ARTERY OCCLUSION [None]
  - DIZZINESS [None]
  - STRESS [None]
  - CORONARY ARTERY THROMBOSIS [None]
  - SPEECH DISORDER [None]
  - SINUS HEADACHE [None]
  - VISUAL IMPAIRMENT [None]
  - PAIN IN EXTREMITY [None]
  - PAIN [None]
  - CEREBROVASCULAR ACCIDENT [None]
